FAERS Safety Report 20134974 (Version 1)
Quarter: 2021Q4

REPORT INFORMATION
  Report Type: Spontaneous
  Country: FR (occurrence: FR)
  Receive Date: 20211201
  Receipt Date: 20211201
  Transmission Date: 20220303
  Serious: Yes (Other)
  Sender: FDA-Public Use
  Company Number: None

PATIENT
  Age: 68 Year
  Sex: Female
  Weight: 60 kg

DRUGS (2)
  1. OPDIVO [Suspect]
     Active Substance: NIVOLUMAB
     Indication: Pleural mesothelioma malignant
     Dosage: 240 MILLIGRAM
     Route: 041
     Dates: start: 20210611, end: 20210709
  2. DAFALGAN [Suspect]
     Active Substance: ACETAMINOPHEN
     Indication: Cancer pain
     Dosage: 4 GRAM, QD
     Route: 048
     Dates: start: 20210609, end: 20210906

REACTIONS (2)
  - Mixed liver injury [Recovering/Resolving]
  - Intentional product use issue [Unknown]

NARRATIVE: CASE EVENT DATE: 20210719
